FAERS Safety Report 24109130 (Version 1)
Quarter: 2024Q3

REPORT INFORMATION
  Report Type: Other
  Country: US (occurrence: US)
  Receive Date: 20240718
  Receipt Date: 20240718
  Transmission Date: 20241017
  Serious: Yes (Life-Threatening, Hospitalization, Other)
  Sender: INNOGENIX
  Company Number: US-Innogenix, LLC-2159235

PATIENT
  Age: 56 Year
  Sex: Female

DRUGS (1)
  1. LABETALOL HYDROCHLORIDE [Suspect]
     Active Substance: LABETALOL\LABETALOL HYDROCHLORIDE
     Indication: Hypertension
     Route: 065

REACTIONS (2)
  - Decompensated hypothyroidism [Recovered/Resolved]
  - BRASH syndrome [Recovered/Resolved]
